FAERS Safety Report 13011775 (Version 13)
Quarter: 2017Q3

REPORT INFORMATION
  Report Type: Report from Study
  Country: MX (occurrence: MX)
  Receive Date: 20161209
  Receipt Date: 20170714
  Transmission Date: 20171127
  Serious: Yes (Death, Life-Threatening, Hospitalization, Disabling)
  Sender: FDA-Public Use
  Company Number: MX-ROCHE-1863634

PATIENT
  Age: 65 Year
  Sex: Female
  Weight: 40 kg

DRUGS (8)
  1. LOPERAMIDE [Concomitant]
     Active Substance: LOPERAMIDE
     Indication: DIARRHOEA
     Route: 065
     Dates: start: 20161130, end: 20161203
  2. TRASTUZUMAB. [Suspect]
     Active Substance: TRASTUZUMAB
     Indication: HER-2 POSITIVE BREAST CANCER
     Dosage: DATE OF MOST RECENT DOSE PRIOR TO ADVERSE EVENT (AE) ONSET: 18/NOV/2016
     Route: 058
     Dates: start: 20161028
  3. METFORMIN [Suspect]
     Active Substance: METFORMIN HYDROCHLORIDE
     Indication: DIABETES MELLITUS
     Route: 065
     Dates: start: 1996, end: 20161202
  4. CAPTOPRIL. [Concomitant]
     Active Substance: CAPTOPRIL
     Indication: HYPERTENSION
     Route: 065
     Dates: start: 2001, end: 20161202
  5. TRAMADOL. [Concomitant]
     Active Substance: TRAMADOL
     Indication: CANCER PAIN
     Route: 065
     Dates: start: 20161130, end: 20161203
  6. PERTUZUMAB. [Suspect]
     Active Substance: PERTUZUMAB
     Indication: HER-2 POSITIVE BREAST CANCER
     Dosage: LOADING DOSE ON DAY 1
     Route: 042
     Dates: start: 20161028
  7. PERTUZUMAB. [Suspect]
     Active Substance: PERTUZUMAB
     Dosage: MAINTENANCE DOSE?DATE OF MOST RECENT DOSE PRIOR TO ADVERSE EVENT (AE) ONSET: 18/NOV/2016
     Route: 042
  8. DOCETAXEL. [Suspect]
     Active Substance: DOCETAXEL
     Indication: HER-2 POSITIVE BREAST CANCER
     Dosage: DATE OF MOST RECENT DOSE PRIOR TO ADVERSE EVENT (AE) ONSET: 18/NOV/2016
     Route: 042
     Dates: start: 20161028

REACTIONS (3)
  - Tumour lysis syndrome [Not Recovered/Not Resolved]
  - Acute kidney injury [Not Recovered/Not Resolved]
  - Lactic acidosis [Fatal]

NARRATIVE: CASE EVENT DATE: 20161130
